FAERS Safety Report 13537864 (Version 1)
Quarter: 2017Q2

REPORT INFORMATION
  Report Type: Report from Study
  Country: PK (occurrence: PK)
  Receive Date: 20170511
  Receipt Date: 20170511
  Transmission Date: 20170830
  Serious: Yes (Death, Hospitalization)
  Sender: FDA-Public Use
  Company Number: PK-INCYTE CORPORATION-2017IN003535

PATIENT
  Age: 64 Year
  Sex: Female
  Weight: 38 kg

DRUGS (1)
  1. JAKAVI [Suspect]
     Active Substance: RUXOLITINIB
     Indication: PRIMARY MYELOFIBROSIS
     Dosage: 15 MG, BID
     Route: 048
     Dates: start: 20170313

REACTIONS (2)
  - Dizziness [Fatal]
  - Oropharyngeal pain [Fatal]

NARRATIVE: CASE EVENT DATE: 20170421
